FAERS Safety Report 7508414-8 (Version None)
Quarter: 2011Q2

REPORT INFORMATION
  Report Type: 
  Country: None (occurrence: None)
  Receive Date: 20110527
  Receipt Date: 20110525
  Transmission Date: 20111010
  Serious: Yes (Hospitalization, Other)
  Sender: FDA-Public Use
  Company Number: US-PFIZER INC-2010004346

PATIENT
  Sex: Female
  Weight: 54.4 kg

DRUGS (7)
  1. LIPITOR [Suspect]
     Dosage: 40 MG, UNK
     Route: 048
     Dates: end: 20100101
  2. NEXIUM [Concomitant]
     Dosage: 40 MG, UNK
  3. LANTUS [Concomitant]
     Indication: DIABETES MELLITUS
     Dosage: 40 MG, UNK
  4. LIPITOR [Suspect]
     Dosage: 40 MG, 1X/DAY
     Route: 048
     Dates: start: 20050101, end: 20110201
  5. COZAAR [Concomitant]
     Indication: HYPERTENSION
     Dosage: 10 MG, 1X/DAY
     Route: 048
  6. HYDROCHLOROTHIAZIDE [Concomitant]
     Dosage: 10 MG, UNK
  7. LIPITOR [Suspect]
     Indication: BLOOD PRESSURE INCREASED
     Dosage: 20 MG, 1X/DAY
     Route: 048
     Dates: start: 20030101

REACTIONS (7)
  - MUSCULOSKELETAL PAIN [None]
  - MALAISE [None]
  - HEADACHE [None]
  - PAIN IN EXTREMITY [None]
  - DYSPNOEA [None]
  - MUSCLE SPASMS [None]
  - JOINT SWELLING [None]
